FAERS Safety Report 26169876 (Version 1)
Quarter: 2025Q4

REPORT INFORMATION
  Report Type: Spontaneous
  Country: US (occurrence: None)
  Receive Date: 20251216
  Receipt Date: 20251216
  Transmission Date: 20260117
  Serious: Yes (Death)
  Sender: FDA-CTU
  Company Number: None

PATIENT
  Age: 66 Year
  Sex: Male
  Weight: 63.8 kg

DRUGS (3)
  1. YESCARTA [Suspect]
     Active Substance: AXICABTAGENE CILOLEUCEL
     Indication: Diffuse large B-cell lymphoma
     Dosage: 68 ML   1  INTRAVENOUS
     Route: 042
     Dates: start: 20251201, end: 20251201
  2. FLUDARABINE [Suspect]
     Active Substance: FLUDARABINE PHOSPHATE
  3. CYCLOPHOSPHAMIDE [Suspect]
     Active Substance: CYCLOPHOSPHAMIDE

REACTIONS (16)
  - Disease progression [None]
  - Blood lactate dehydrogenase increased [None]
  - Diffuse large B-cell lymphoma [None]
  - Inflammatory marker increased [None]
  - Laryngeal oedema [None]
  - Hyperbilirubinaemia [None]
  - Mucosal inflammation [None]
  - Staphylococcal bacteraemia [None]
  - Hypoxia [None]
  - Cytokine release syndrome [None]
  - Pulmonary oedema [None]
  - Pleural effusion [None]
  - Atrial fibrillation [None]
  - Pneumonia [None]
  - Bradycardia [None]
  - Cardio-respiratory arrest [None]

NARRATIVE: CASE EVENT DATE: 20251209
